FAERS Safety Report 9576573 (Version 1)
Quarter: 2013Q4

REPORT INFORMATION
  Report Type: Spontaneous
  Country: US (occurrence: US)
  Receive Date: 20131001
  Receipt Date: 20131001
  Transmission Date: 20140711
  Serious: No
  Sender: FDA-Public Use
  Company Number: US-AMGEN-USASP2013003598

PATIENT
  Age: 81 Year
  Sex: Female
  Weight: 48.98 kg

DRUGS (12)
  1. ENBREL [Suspect]
     Indication: RHEUMATOID ARTHRITIS
     Dosage: 50 MG, QWK
     Route: 058
  2. VANCOCIN HYDROCHLORIDE [Concomitant]
     Dosage: 125 MG, UNK
  3. CYMBALTA [Concomitant]
     Dosage: 30 MG, UNK
  4. METHOTREXATE [Concomitant]
     Dosage: 2.5 MG, UNK
  5. PREDNISONE [Concomitant]
     Dosage: 1 MG, UNK
  6. FOLIC ACID [Concomitant]
     Dosage: 1 MG, UNK
  7. PRILOSEC                           /00661201/ [Concomitant]
     Dosage: 10 MG, UNK
  8. SPIRIVA HANDIHALER [Concomitant]
     Dosage: UNK
  9. VITAMIN D                          /00107901/ [Concomitant]
     Dosage: 1000 UNIT, UNK
  10. CALCIUM [Concomitant]
     Dosage: UNK,500
  11. MULTIVITAMINS, PLAIN [Concomitant]
     Dosage: UNK
  12. OMEGA 3                            /01334101/ [Concomitant]
     Dosage: 1000 MG, UNK

REACTIONS (1)
  - Herpes zoster [Unknown]
